FAERS Safety Report 8576073-1 (Version None)
Quarter: 2012Q3

REPORT INFORMATION
  Report Type: 
  Country: None (occurrence: None)
  Receive Date: 20120807
  Receipt Date: 20120731
  Transmission Date: 20120928
  Serious: Yes (Other)
  Sender: FDA-Public Use
  Company Number: IN-B.I. PHARMACEUTICALS,INC./RIDGEFIELD-2012-CS-01120IG

PATIENT
  Sex: Female
  Weight: 55 kg

DRUGS (2)
  1. TRAJENTA [Suspect]
     Indication: TYPE 2 DIABETES MELLITUS
     Dosage: 5 MG
     Route: 048
     Dates: start: 20120729, end: 20120730
  2. OLMESARTAN MEDOXOMIL [Concomitant]
     Dosage: 40 MG

REACTIONS (2)
  - ANXIETY [None]
  - OEDEMA PERIPHERAL [None]
